FAERS Safety Report 10096267 (Version 2)
Quarter: 2014Q2

REPORT INFORMATION
  Report Type: Spontaneous
  Country: US (occurrence: US)
  Receive Date: 20140422
  Receipt Date: 20140610
  Transmission Date: 20141212
  Serious: Yes (Hospitalization)
  Sender: FDA-Public Use
  Company Number: US-B.I. PHARMACEUTICALS,INC./RIDGEFIELD-2014-BI-17731BP

PATIENT
  Age: 89 Year
  Sex: Female
  Weight: 92.99 kg

DRUGS (14)
  1. PRADAXA [Suspect]
     Indication: ATRIAL FIBRILLATION
     Dosage: 300 MG
     Route: 065
     Dates: start: 201108, end: 201203
  2. PRADAXA [Suspect]
     Indication: ANTICOAGULANT THERAPY
  3. SPIRONOLACTONE [Concomitant]
     Dosage: 25 MG
     Route: 048
  4. POTASSIUM [Concomitant]
     Dosage: 10 MEQ
     Route: 048
  5. LASIX [Concomitant]
     Dosage: 40 MG
     Route: 048
  6. CALCIUM+D [Concomitant]
     Dosage: 1 ANZ
     Route: 048
  7. MVI [Concomitant]
     Dosage: 1 ANZ
     Route: 048
  8. DIOVAN [Concomitant]
     Dosage: 40 MG
     Route: 048
  9. MELOXICAM [Concomitant]
     Dosage: 15 MG
     Route: 048
     Dates: end: 201203
  10. ASPIRIN [Concomitant]
     Dosage: 81 MG
     Route: 048
     Dates: end: 201203
  11. LORTAB [Concomitant]
     Dosage: 5/500 AT BEDTIME
     Route: 048
  12. TYLENOL [Concomitant]
     Route: 048
  13. VICOPROFEN [Concomitant]
     Route: 048
  14. MILK OF MAGNESIA [Concomitant]
     Dosage: 90 ML
     Route: 048

REACTIONS (4)
  - Gastrointestinal haemorrhage [Recovered/Resolved]
  - Perirectal abscess [Unknown]
  - Anaemia [Unknown]
  - Shock haemorrhagic [Unknown]
